FAERS Safety Report 24738776 (Version 1)
Quarter: 2024Q4

REPORT INFORMATION
  Report Type: Report from Study
  Country: US (occurrence: US)
  Receive Date: 20241216
  Receipt Date: 20241216
  Transmission Date: 20250115
  Serious: Yes (Death, Other)
  Sender: ALEXION PHARMACEUTICALS
  Company Number: US-AstraZeneca-CH-00767545A

PATIENT

DRUGS (6)
  1. EXENATIDE [Suspect]
     Active Substance: EXENATIDE
     Dosage: 2 MILLIGRAM, QW
  2. EXENATIDE [Suspect]
     Active Substance: EXENATIDE
     Dosage: 2 MILLIGRAM, QW
     Route: 058
  3. EXENATIDE [Suspect]
     Active Substance: EXENATIDE
     Dosage: 2 MILLIGRAM, QW
  4. EXENATIDE [Suspect]
     Active Substance: EXENATIDE
     Dosage: 2 MILLIGRAM, QW
     Route: 058
  5. DEVICE [Suspect]
     Active Substance: DEVICE
  6. DEVICE [Suspect]
     Active Substance: DEVICE

REACTIONS (1)
  - Death [Fatal]
